FAERS Safety Report 5726347-4 (Version None)
Quarter: 2008Q2

REPORT INFORMATION
  Report Type: 
  Country: None (occurrence: None)
  Receive Date: 20080502
  Receipt Date: 20080430
  Transmission Date: 20081010
  Serious: Yes (Death, Hospitalization, Other)
  Sender: FDA-Public Use
  Company Number: US-GILEAD-2008-0016025

PATIENT
  Sex: Female
  Weight: 91.254 kg

DRUGS (9)
  1. LETAIRIS [Suspect]
     Indication: COR PULMONALE CHRONIC
     Route: 048
     Dates: start: 20071017, end: 20080313
  2. LETAIRIS [Suspect]
     Route: 048
     Dates: start: 20080314
  3. PREDNISONE [Concomitant]
  4. SINGULAIR [Concomitant]
  5. ZOCOR [Concomitant]
  6. COREG [Concomitant]
  7. LASIX [Concomitant]
  8. BENICAR [Concomitant]
  9. ALLOPURINOL [Concomitant]

REACTIONS (5)
  - CARDIAC FAILURE CONGESTIVE [None]
  - CHRONIC OBSTRUCTIVE PULMONARY DISEASE [None]
  - OXYGEN SATURATION DECREASED [None]
  - RESPIRATORY FAILURE [None]
  - SLEEP APNOEA SYNDROME [None]
